FAERS Safety Report 8328928-0 (Version None)
Quarter: 2012Q2

REPORT INFORMATION
  Report Type: 
  Country: None (occurrence: None)
  Receive Date: 20120502
  Receipt Date: 20101029
  Transmission Date: 20120825
  Serious: No
  Sender: FDA-Public Use
  Company Number: US-TEVA-2010005196

PATIENT
  Sex: Male
  Weight: 77.18 kg

DRUGS (3)
  1. VENTOLIN DS [Concomitant]
  2. NUVIGIL [Suspect]
     Indication: NARCOLEPSY
     Route: 048
     Dates: start: 20100728, end: 20100924
  3. NUVIGIL [Suspect]
     Route: 048
     Dates: start: 20100901, end: 20100924

REACTIONS (7)
  - MENTAL IMPAIRMENT [None]
  - MUSCULAR WEAKNESS [None]
  - NAUSEA [None]
  - HEADACHE [None]
  - DRUG INEFFECTIVE [None]
  - FATIGUE [None]
  - ASTHENIA [None]
